FAERS Safety Report 4734749-8 (Version None)
Quarter: 2005Q3

REPORT INFORMATION
  Report Type: 
  Country: None (occurrence: None)
  Receive Date: 20050804
  Receipt Date: 20050425
  Transmission Date: 20060218
  Serious: Yes (Other)
  Sender: FDA-Public Use
  Company Number: BE-GLAXOSMITHKLINE-B0379413A

PATIENT
  Age: 73 Year
  Sex: Male
  Weight: 84 kg

DRUGS (2)
  1. AVODART [Suspect]
     Dosage: .5MG PER DAY
     Route: 048
     Dates: start: 20050311, end: 20050504
  2. NO CONCURRENT MEDICATION [Concomitant]

REACTIONS (4)
  - COAGULOPATHY [None]
  - DYSURIA [None]
  - HAEMATURIA [None]
  - HAEMORRHAGE [None]
